FAERS Safety Report 15661229 (Version 1)
Quarter: 2018Q4

REPORT INFORMATION
  Report Type: Spontaneous
  Country: DE (occurrence: DE)
  Receive Date: 20181127
  Receipt Date: 20181127
  Transmission Date: 20190205
  Serious: Yes (Other)
  Sender: FDA-Public Use
  Company Number: DE-OTSUKA-2018_037151

PATIENT
  Age: 53 Year
  Sex: Male

DRUGS (1)
  1. ABILIFY MAINTENA [Suspect]
     Active Substance: ARIPIPRAZOLE
     Indication: SCHIZOPHRENIA
     Dosage: 400 MG, UNK
     Route: 065
     Dates: start: 2017

REACTIONS (15)
  - Hallucination, auditory [Unknown]
  - Decreased appetite [Unknown]
  - Personal relationship issue [Unknown]
  - Restlessness [Unknown]
  - Refusal of treatment by patient [Unknown]
  - Angina pectoris [Unknown]
  - Hypertension [Unknown]
  - Peripheral swelling [Unknown]
  - Dizziness [Unknown]
  - Cardiac disorder [Unknown]
  - Fluid retention [Unknown]
  - Sleep disorder [Unknown]
  - Economic problem [Unknown]
  - Abdominal distension [Unknown]
  - Weight increased [Unknown]
